FAERS Safety Report 6424259-4 (Version None)
Quarter: 2009Q4

REPORT INFORMATION
  Report Type: 
  Country: None (occurrence: None)
  Receive Date: 20091102
  Receipt Date: 20091019
  Transmission Date: 20100525
  Serious: Yes (Hospitalization)
  Sender: FDA-Public Use
  Company Number: GB-GENENTECH-259429

PATIENT
  Sex: Female
  Weight: 123.7 kg

DRUGS (3)
  1. BEVACIZUMAB [Suspect]
     Indication: OVARIAN CANCER
     Dosage: 850 MG, Q3W
     Route: 042
     Dates: start: 20080204
  2. PACLITAXEL [Suspect]
     Indication: OVARIAN CANCER
     Dosage: 350 MG, Q3W
     Route: 042
     Dates: start: 20080204
  3. CARBOPLATIN [Suspect]
     Indication: OVARIAN CANCER
     Dosage: 800 MG, Q3W
     Route: 042
     Dates: start: 20080204

REACTIONS (2)
  - BODY TEMPERATURE INCREASED [None]
  - DEVICE RELATED INFECTION [None]
